FAERS Safety Report 26159399 (Version 1)
Quarter: 2025Q4

REPORT INFORMATION
  Report Type: Spontaneous
  Country: CN (occurrence: CN)
  Receive Date: 20251216
  Receipt Date: 20251216
  Transmission Date: 20260118
  Serious: Yes (Life-Threatening)
  Sender: Kenvue
  Company Number: CN-KENVUE-20251202519

PATIENT
  Age: 8 Year

DRUGS (1)
  1. CHILDRENS MOTRIN [Suspect]
     Active Substance: IBUPROFEN
     Indication: Wound complication
     Dosage: 10 MILLILITER, SINGLE
     Route: 061

REACTIONS (9)
  - Dyspnoea [Recovered/Resolved]
  - Chest discomfort [Recovered/Resolved]
  - Pallor [Recovered/Resolved]
  - Blood pressure decreased [Recovered/Resolved]
  - Oxygen saturation decreased [Recovered/Resolved]
  - Lethargy [Recovered/Resolved]
  - Erythema [Recovered/Resolved]
  - Hyperhidrosis [Recovered/Resolved]
  - Off label use [Unknown]
